FAERS Safety Report 17392656 (Version 3)
Quarter: 2020Q1

REPORT INFORMATION
  Report Type: Spontaneous
  Country: JP (occurrence: JP)
  Receive Date: 20200207
  Receipt Date: 20200213
  Transmission Date: 20200409
  Serious: Yes (Other)
  Sender: FDA-Public Use
  Company Number: JP-ROCHE-2343759

PATIENT
  Age: 72 Year
  Sex: Male

DRUGS (3)
  1. XELODA [Suspect]
     Active Substance: CAPECITABINE
     Indication: GASTRIC CANCER
     Dosage: UNCERTAIN DOSAGE AND DOSE INTERVAL UNCERTAINTY
     Route: 048
  2. CISPLATIN. [Suspect]
     Active Substance: CISPLATIN
     Indication: GASTRIC CANCER
     Dosage: UNCERTAIN DOSAGE AND DOSE INTERVAL UNCERTAINTY
     Route: 041
  3. HERCEPTIN [Suspect]
     Active Substance: TRASTUZUMAB
     Indication: GASTRIC CANCER
     Dosage: UNCERTAIN DOSAGE AND DOSE INTERVAL UNCERTAINTY
     Route: 041

REACTIONS (5)
  - Neutropenia [Unknown]
  - Decreased appetite [Unknown]
  - Haematotoxicity [Unknown]
  - White blood cell count decreased [Unknown]
  - Anaemia [Unknown]
